FAERS Safety Report 6193458-1 (Version None)
Quarter: 2009Q2

REPORT INFORMATION
  Report Type: 
  Country: None (occurrence: None)
  Receive Date: 20090518
  Receipt Date: 20090508
  Transmission Date: 20091009
  Serious: Yes (Other)
  Sender: FDA-Public Use
  Company Number: US-AMGEN-US344915

PATIENT
  Sex: Female
  Weight: 80.8 kg

DRUGS (7)
  1. NPLATE [Suspect]
     Indication: IDIOPATHIC THROMBOCYTOPENIC PURPURA
     Route: 058
     Dates: start: 20081104, end: 20090116
  2. NORVASC [Concomitant]
  3. SYNTHROID [Concomitant]
  4. DIOVAN [Concomitant]
  5. LYRICA [Concomitant]
  6. PRAVASTATIN [Concomitant]
  7. DETROL [Concomitant]

REACTIONS (1)
  - DRUG INEFFECTIVE [None]
